FAERS Safety Report 25728508 (Version 2)
Quarter: 2025Q3

REPORT INFORMATION
  Report Type: Spontaneous
  Country: US (occurrence: US)
  Receive Date: 20250826
  Receipt Date: 20250828
  Transmission Date: 20251020
  Serious: No
  Sender: Haleon PLC
  Company Number: US-HALEON-2259255

PATIENT

DRUGS (1)
  1. GAS-X MAXIMUM STRENGTH SOFTGELS [Suspect]
     Active Substance: DIMETHICONE
     Indication: Product used for unknown indication

REACTIONS (1)
  - Drug ineffective [Unknown]
